FAERS Safety Report 25433945 (Version 2)
Quarter: 2025Q3

REPORT INFORMATION
  Report Type: Spontaneous
  Country: EU (occurrence: EU)
  Receive Date: 20250613
  Receipt Date: 20250714
  Transmission Date: 20251021
  Serious: Yes (Hospitalization)
  Sender: MYLAN
  Company Number: EU-MYLANLABS-2025M1049430

PATIENT
  Age: 79 Year
  Sex: Male

DRUGS (4)
  1. APIXABAN [Suspect]
     Active Substance: APIXABAN
     Indication: Atrial fibrillation
  2. APIXABAN [Suspect]
     Active Substance: APIXABAN
     Indication: Anticoagulant therapy
     Route: 048
  3. APIXABAN [Suspect]
     Active Substance: APIXABAN
     Route: 048
  4. APIXABAN [Suspect]
     Active Substance: APIXABAN

REACTIONS (3)
  - Spinal epidural haematoma [Recovered/Resolved with Sequelae]
  - Paraparesis [Recovering/Resolving]
  - Micturition urgency [Recovering/Resolving]
